FAERS Safety Report 5334288-X (Version None)
Quarter: 2007Q2

REPORT INFORMATION
  Report Type: 
  Country: None (occurrence: None)
  Receive Date: 20070523
  Receipt Date: 20070523
  Transmission Date: 20071010
  Serious: Yes (Hospitalization)
  Sender: FDA-Public Use
  Company Number: None

PATIENT
  Sex: Male

DRUGS (17)
  1. REVLIMID [Suspect]
     Indication: MYELODYSPLASTIC SYNDROME
     Dosage: 10MG DAILY PO
     Route: 048
  2. ZOLOFT [Concomitant]
  3. TROZINE [Concomitant]
  4. OS-CAL [Concomitant]
  5. REMERON [Concomitant]
  6. ZYPREXA [Concomitant]
  7. TERAZOSIN HCL [Concomitant]
  8. FENTANYL [Concomitant]
  9. PREDNISOLONE EYE DROP [Concomitant]
  10. COLACE [Concomitant]
  11. PEPCID [Concomitant]
  12. HYDROMORPHONE HCL [Concomitant]
  13. POTASSIUM ACETATE [Concomitant]
  14. TRAZODONE HCL [Concomitant]
  15. FUROSEMIDE [Concomitant]
  16. PROCRIT [Concomitant]
  17. TERAZOSIN HCL [Concomitant]

REACTIONS (6)
  - DYSPHAGIA [None]
  - HAEMORRHOIDAL HAEMORRHAGE [None]
  - MYASTHENIA GRAVIS [None]
  - PAROTITIS [None]
  - PNEUMONIA [None]
  - THROMBOCYTOPENIA [None]
